FAERS Safety Report 24189153 (Version 3)
Quarter: 2024Q3

REPORT INFORMATION
  Report Type: Spontaneous
  Country: SG (occurrence: SG)
  Receive Date: 20240808
  Receipt Date: 20240829
  Transmission Date: 20241016
  Serious: Yes (Other)
  Sender: EISAI
  Company Number: SG-Eisai-EC-2024-171414

PATIENT
  Sex: Male

DRUGS (2)
  1. LENVATINIB [Suspect]
     Active Substance: LENVATINIB
     Indication: Renal cell carcinoma
     Route: 048
     Dates: start: 202312, end: 20240801
  2. LENVATINIB [Suspect]
     Active Substance: LENVATINIB
     Dosage: 5 TIMES A WEEK
     Route: 048
     Dates: start: 20240802

REACTIONS (1)
  - Polycythaemia [Recovered/Resolved]

NARRATIVE: CASE EVENT DATE: 20240501
